FAERS Safety Report 21766833 (Version 1)
Quarter: 2022Q4

REPORT INFORMATION
  Report Type: Spontaneous
  Country: US (occurrence: None)
  Receive Date: 20221222
  Receipt Date: 20221222
  Transmission Date: 20230113
  Serious: Yes (Death)
  Sender: FDA-Public Use
  Company Number: None

PATIENT
  Age: 55 Year
  Sex: Female

DRUGS (1)
  1. REMDESIVIR [Suspect]
     Active Substance: REMDESIVIR
     Route: 042

REACTIONS (3)
  - COVID-19 [None]
  - Pain [None]
  - General physical health deterioration [None]

NARRATIVE: CASE EVENT DATE: 20211026
